FAERS Safety Report 6190128-0 (Version None)
Quarter: 2009Q2

REPORT INFORMATION
  Report Type: 
  Country: None (occurrence: None)
  Receive Date: 20090513
  Receipt Date: 20090513
  Transmission Date: 20091009
  Serious: Yes (Other)
  Sender: FDA-Public Use
  Company Number: None

PATIENT
  Age: 55 Year
  Sex: Female
  Weight: 48.9885 kg

DRUGS (3)
  1. PAROXETINE HCL EXTENDED RELEASE [Suspect]
     Indication: ANXIETY
     Dosage: 1 TABLET ONCE A DAY PO
     Route: 048
     Dates: start: 20090312, end: 20090403
  2. PAROXETINE HCL EXTENDED RELEASE [Suspect]
     Indication: DEPRESSION
     Dosage: 1 TABLET ONCE A DAY PO
     Route: 048
     Dates: start: 20090312, end: 20090403
  3. PAROXETINE HCL EXTENDED RELEASE [Suspect]
     Indication: POST-TRAUMATIC STRESS DISORDER
     Dosage: 1 TABLET ONCE A DAY PO
     Route: 048
     Dates: start: 20090312, end: 20090403

REACTIONS (5)
  - ACTIVITIES OF DAILY LIVING IMPAIRED [None]
  - AGITATION [None]
  - APATHY [None]
  - DEPRESSION [None]
  - PRODUCT SUBSTITUTION ISSUE [None]
